FAERS Safety Report 9554364 (Version 1)
Quarter: 2013Q3

REPORT INFORMATION
  Report Type: Spontaneous
  Country: US (occurrence: US)
  Receive Date: 20130925
  Receipt Date: 20130925
  Transmission Date: 20140515
  Serious: Yes (Other)
  Sender: FDA-Public Use
  Company Number: US-009507513-1309USA010578

PATIENT
  Sex: 0

DRUGS (1)
  1. FOSAMAX [Suspect]

REACTIONS (1)
  - Femur fracture [Unknown]
